FAERS Safety Report 24966768 (Version 1)
Quarter: 2025Q1

REPORT INFORMATION
  Report Type: Spontaneous
  Country: JP (occurrence: JP)
  Receive Date: 20250213
  Receipt Date: 20250213
  Transmission Date: 20250408
  Serious: Yes (Other)
  Sender: DEVA
  Company Number: JP-DEVA-2025-JP-000032

PATIENT
  Age: 88 Year
  Sex: Female

DRUGS (1)
  1. CEFTRIAXONE [Suspect]
     Active Substance: CEFTRIAXONE
     Indication: Leptospirosis
     Route: 042

REACTIONS (1)
  - Jarisch-Herxheimer reaction [Unknown]
